FAERS Safety Report 9453639 (Version 1)
Quarter: 2013Q3

REPORT INFORMATION
  Report Type: Spontaneous
  Country: US (occurrence: None)
  Receive Date: 20130809
  Receipt Date: 20130809
  Transmission Date: 20140515
  Serious: Yes (Other)
  Sender: FDA-Public Use
  Company Number: None

PATIENT
  Age: 43 Year
  Sex: Male
  Weight: 88.45 kg

DRUGS (1)
  1. LANTUS SOLOSTAR [Suspect]
     Indication: TYPE 1 DIABETES MELLITUS
     Dosage: 20 UNITS TWICE DAILY GIVEN INTO/UNDER THE SKIN
     Route: 058

REACTIONS (4)
  - Blood glucose decreased [None]
  - Product packaging quantity issue [None]
  - Incorrect dose administered [None]
  - Device malfunction [None]
